FAERS Safety Report 6795200-X (Version None)
Quarter: 2010Q2

REPORT INFORMATION
  Report Type: 
  Country: None (occurrence: None)
  Receive Date: 20100625
  Receipt Date: 20100621
  Transmission Date: 20101027
  Serious: Yes (Death, Hospitalization)
  Sender: FDA-Public Use
  Company Number: JP-ASTRAZENECA-2010SE24752

PATIENT
  Age: 67 Year
  Sex: Male

DRUGS (9)
  1. AMIAS [Suspect]
     Route: 048
     Dates: start: 20050101, end: 20100505
  2. DALTEPARIN SODIUM [Suspect]
     Indication: LUNG NEOPLASM MALIGNANT
     Route: 065
     Dates: start: 20091203, end: 20100505
  3. IBUPROFEN [Suspect]
     Route: 048
     Dates: start: 20091101, end: 20100505
  4. ADALAT [Concomitant]
     Route: 048
     Dates: start: 20050101, end: 20100505
  5. SIMVASTATIN [Concomitant]
     Route: 048
     Dates: start: 20050101, end: 20100505
  6. PARACETAMOL [Concomitant]
     Route: 048
     Dates: start: 20091101, end: 20100507
  7. ERLOTINIB [Concomitant]
     Route: 065
     Dates: start: 20100314
  8. POTASSIUM [Concomitant]
     Route: 048
  9. OTHER UNSPECIFIED MEDICATIONS FROM RUSSIA [Concomitant]
     Route: 065

REACTIONS (4)
  - DISEASE PROGRESSION [None]
  - LUNG ADENOCARCINOMA [None]
  - PLEURAL EFFUSION [None]
  - RENAL FAILURE [None]
